FAERS Safety Report 4746047-7 (Version None)
Quarter: 2005Q3

REPORT INFORMATION
  Report Type: 
  Country: None (occurrence: None)
  Receive Date: 20050816
  Receipt Date: 20050128
  Transmission Date: 20060218
  Serious: Yes (Disabling)
  Sender: FDA-Public Use
  Company Number: US-ROCHE-394159

PATIENT
  Age: 64 Year
  Sex: Female
  Weight: 53.5 kg

DRUGS (1)
  1. XELODA [Suspect]
     Dosage: 1500 MG TAKEN IN MORNING AND EVENING.
     Route: 048
     Dates: start: 20040415

REACTIONS (2)
  - CORNEAL DISORDER [None]
  - VISUAL ACUITY REDUCED [None]
